FAERS Safety Report 12762418 (Version 1)
Quarter: 2016Q3

REPORT INFORMATION
  Report Type: Spontaneous
  Country: JP (occurrence: JP)
  Receive Date: 20160920
  Receipt Date: 20160920
  Transmission Date: 20161109
  Serious: Yes (Hospitalization, Disabling, Other)
  Sender: FDA-Public Use
  Company Number: JP-OTSUKA-02100-JPN-05-0453

PATIENT
  Age: 80 Year
  Sex: Male
  Weight: 51.8 kg

DRUGS (9)
  1. PLETAAL TABLETS 100MG [Suspect]
     Active Substance: CILOSTAZOL
     Indication: CEREBRAL INFARCTION
     Dosage: 100 MG, BID
     Route: 048
     Dates: start: 200503, end: 20050829
  2. LANIRAPID [Concomitant]
     Active Substance: METILDIGOXIN
     Indication: ATRIAL FIBRILLATION
     Dosage: 0.05 MG, QD
     Route: 048
     Dates: start: 20050325, end: 20050829
  3. WARFARIN [Suspect]
     Active Substance: WARFARIN
     Dosage: 1 MG, QD
     Route: 048
     Dates: start: 20050925
  4. PLETAAL TABLETS 100MG [Suspect]
     Active Substance: CILOSTAZOL
     Dosage: 100 MG, BID
     Route: 048
     Dates: start: 20050925
  5. PANALDINE [Concomitant]
     Active Substance: TICLOPIDINE HYDROCHLORIDE
     Indication: CEREBRAL INFARCTION
     Dosage: 100 MG, QD
     Route: 048
     Dates: start: 20020401, end: 20050829
  6. NU LOTAN [Concomitant]
     Active Substance: LOSARTAN
     Indication: HYPERTENSION
     Dosage: 50 MG, QD
     Route: 048
     Dates: start: 20020401, end: 20050829
  7. FK [Concomitant]
     Indication: GASTRECTOMY
     Dosage: 1.3 G, TID
     Route: 048
     Dates: start: 20020401, end: 20050829
  8. STOMILASE [Concomitant]
     Indication: GASTRECTOMY
     Dosage: 1 DF, TID
     Route: 048
     Dates: start: 20020401, end: 20050829
  9. WARFARIN [Suspect]
     Active Substance: WARFARIN
     Indication: ATRIAL FIBRILLATION
     Dosage: 1 MG, QD
     Route: 048
     Dates: start: 200503, end: 20050829

REACTIONS (2)
  - Platelet count decreased [Recovered/Resolved]
  - Pernicious anaemia [Recovered/Resolved]

NARRATIVE: CASE EVENT DATE: 20050829
